FAERS Safety Report 23767237 (Version 2)
Quarter: 2024Q2

REPORT INFORMATION
  Report Type: Spontaneous
  Country: TW (occurrence: TW)
  Receive Date: 20240422
  Receipt Date: 20240611
  Transmission Date: 20240716
  Serious: Yes (Death)
  Sender: FDA-Public Use
  Company Number: TW-AMGEN-TWNSP2024078288

PATIENT

DRUGS (3)
  1. XGEVA [Suspect]
     Active Substance: DENOSUMAB
     Indication: Metastases to bone
     Dosage: 120 MILLIGRAM, QMO
     Route: 058
  2. AVASTIN [Suspect]
     Active Substance: BEVACIZUMAB
     Indication: Non-small cell lung cancer
     Dosage: 7.5 MILLIGRAM/KILOGRAM, Q3WK
     Route: 065
  3. RAMUCIRUMAB [Concomitant]
     Active Substance: RAMUCIRUMAB
     Indication: Non-small cell lung cancer stage IV
     Dosage: UNK (5 TO 10MG/KG BODY WEIGHT)
     Route: 065

REACTIONS (1)
  - Death [Fatal]
